FAERS Safety Report 7818382 (Version 3)
Quarter: 2013Q3

REPORT INFORMATION
  Report Type: Spontaneous
  Country: US (occurrence: US)
  Receive Date: 20110218
  Receipt Date: 20130719
  Transmission Date: 20140515
  Serious: Yes (Death, Hospitalization, Other)
  Sender: FDA-Public Use
  Company Number: US-US-EMD SERONO, INC.-230760J10USA

PATIENT
  Sex: Female
  Weight: 51 kg

DRUGS (9)
  1. REBIF [Suspect]
     Indication: MULTIPLE SCLEROSIS
     Route: 058
     Dates: start: 20070129, end: 201211
  2. STEROIDS [Suspect]
     Indication: MULTIPLE SCLEROSIS
  3. VASOTEC [Concomitant]
     Indication: HYPERTENSION
  4. NEURONTIN [Concomitant]
     Indication: PAIN
  5. VERAPAMIL [Concomitant]
     Indication: MIGRAINE
  6. ZOLOFT [Concomitant]
     Indication: DEPRESSION
  7. FOSAMAX [Concomitant]
     Indication: OSTEOPOROSIS
  8. DETROL LA [Concomitant]
     Indication: NEUROGENIC BLADDER
  9. DITROPAN [Concomitant]
     Indication: NEUROGENIC BLADDER

REACTIONS (6)
  - Pneumonia [Fatal]
  - Septic shock [Fatal]
  - Cardiac disorder [Fatal]
  - Osteonecrosis [Recovered/Resolved]
  - Pelvic fracture [Unknown]
  - Fall [Unknown]
